FAERS Safety Report 6756288 (Version 2)
Quarter: 2013Q1

REPORT INFORMATION
  Report Type: Report from Study
  Country: US (occurrence: US)
  Receive Date: 20080912
  Receipt Date: 20130201
  Transmission Date: 20140127
  Serious: Yes (Other)
  Sender: FDA-Public Use
  Company Number: US-ABBOTT-08P-163-0458681-00

PATIENT
  Sex: Female
  Weight: 107.14 kg

DRUGS (8)
  1. HUMIRA 40 MG/0.8 ML PEN [Suspect]
     Indication: CROHN^S DISEASE
     Route: 058
     Dates: start: 200801, end: 20080606
  2. HUMIRA 40 MG/0.8 ML PEN [Suspect]
     Dates: end: 2011
  3. HUMIRA 40 MG/0.8 ML PEN [Suspect]
     Dates: start: 20121216
  4. PREDNISONE [Concomitant]
     Indication: CROHN^S DISEASE
     Dates: end: 20080603
  5. INHALERS [Concomitant]
     Indication: CHRONIC OBSTRUCTIVE PULMONARY DISEASE
     Route: 055
  6. VITAMINS [Concomitant]
     Indication: CROHN^S DISEASE
  7. LASIX [Concomitant]
     Indication: HYPERTENSION
  8. AMLODIPINE BESILATE [Concomitant]
     Indication: HYPERTENSION
     Dosage: 10/20MG QD

REACTIONS (5)
  - Ileostomy [Recovered/Resolved]
  - Drug ineffective [Not Recovered/Not Resolved]
  - Crohn^s disease [Not Recovered/Not Resolved]
  - Bronchitis [Not Recovered/Not Resolved]
  - Gastrooesophageal reflux disease [Unknown]
